FAERS Safety Report 21738924 (Version 2)
Quarter: 2022Q4

REPORT INFORMATION
  Report Type: Spontaneous
  Country: US (occurrence: US)
  Receive Date: 20221216
  Receipt Date: 20221224
  Transmission Date: 20230112
  Serious: Yes (Life-Threatening, Hospitalization, Other)
  Sender: FDA-Public Use
  Company Number: US-MLMSERVICE-20221125-3944110-1

PATIENT
  Age: 64 Year
  Sex: Male

DRUGS (2)
  1. VALACYCLOVIR HYDROCHLORIDE [Suspect]
     Active Substance: VALACYCLOVIR HYDROCHLORIDE
     Indication: Herpes zoster
     Dosage: 1000 MILLIGRAM
     Route: 065
  2. NICARDIPINE [Concomitant]
     Active Substance: NICARDIPINE
     Indication: Hypertension
     Dosage: UNK
     Route: 065

REACTIONS (8)
  - Encephalopathy [Recovering/Resolving]
  - Hypothermia [Unknown]
  - Hypertension [Unknown]
  - Incorrect dose administered [Unknown]
  - Hallucination [Unknown]
  - Leukocytosis [Unknown]
  - Confusional state [Unknown]
  - Disorientation [Unknown]
